FAERS Safety Report 14750253 (Version 1)
Quarter: 2018Q2

REPORT INFORMATION
  Report Type: Spontaneous
  Country: FR (occurrence: FR)
  Receive Date: 20180412
  Receipt Date: 20180412
  Transmission Date: 20180711
  Serious: Yes (Other)
  Sender: FDA-Public Use
  Company Number: FR-MERCK KGAA-2045613

PATIENT
  Age: 66 Year
  Sex: Female

DRUGS (7)
  1. NOVOTHYROX [Suspect]
     Active Substance: LEVOTHYROXINE SODIUM
     Indication: HYPOTHYROIDISM
     Route: 048
     Dates: start: 201704, end: 201803
  2. LAROXYL [Concomitant]
     Active Substance: AMITRIPTYLINE HYDROCHLORIDE
  3. PRETERAX [Concomitant]
     Active Substance: INDAPAMIDE\PERINDOPRIL
  4. LYSANXIA [Concomitant]
     Active Substance: PRAZEPAM
  5. DEROXAT [Concomitant]
     Active Substance: PAROXETINE HYDROCHLORIDE
  6. DAFALGAN [Concomitant]
     Active Substance: ACETAMINOPHEN
  7. DIFFU K [Concomitant]
     Active Substance: POTASSIUM CHLORIDE

REACTIONS (7)
  - Headache [Not Recovered/Not Resolved]
  - Proteinuria [Not Recovered/Not Resolved]
  - Vertigo [Not Recovered/Not Resolved]
  - Tachycardia [Not Recovered/Not Resolved]
  - Renal failure [Not Recovered/Not Resolved]
  - Diarrhoea [Recovered/Resolved]
  - Blood thyroid stimulating hormone normal [Recovered/Resolved]

NARRATIVE: CASE EVENT DATE: 201704
